FAERS Safety Report 12767661 (Version 1)
Quarter: 2016Q3

REPORT INFORMATION
  Report Type: Spontaneous
  Country: ES (occurrence: ES)
  Receive Date: 20160921
  Receipt Date: 20160921
  Transmission Date: 20161109
  Serious: Yes (Other)
  Sender: FDA-Public Use
  Company Number: ES-UNICHEM LABORATORIES LIMITED-UCM201609-000211

PATIENT
  Age: 41 Year
  Sex: Male

DRUGS (5)
  1. LORATADINE. [Suspect]
     Active Substance: LORATADINE
     Indication: CHRONIC SPONTANEOUS URTICARIA
  2. DEXCHLORPHENIRAMINE [Suspect]
     Active Substance: DEXCHLORPHENIRAMINE
  3. RUPATADINE [Suspect]
     Active Substance: RUPATADINE
     Indication: CHRONIC SPONTANEOUS URTICARIA
  4. EBASTINE [Suspect]
     Active Substance: EBASTINE
     Indication: CHRONIC SPONTANEOUS URTICARIA
  5. CETIRIZINE, HCL [Suspect]
     Active Substance: CETIRIZINE HYDROCHLORIDE
     Indication: CHRONIC SPONTANEOUS URTICARIA

REACTIONS (4)
  - Drug ineffective [Unknown]
  - Angioedema [Recovered/Resolved]
  - Urticaria [Unknown]
  - Type I hypersensitivity [Recovered/Resolved]
